FAERS Safety Report 6173793-3 (Version None)
Quarter: 2009Q2

REPORT INFORMATION
  Report Type: 
  Country: None (occurrence: None)
  Receive Date: 20090430
  Receipt Date: 20090422
  Transmission Date: 20091009
  Serious: Yes (Hospitalization, Other)
  Sender: FDA-Public Use
  Company Number: US-AMGEN-QUU328859

PATIENT
  Sex: Male
  Weight: 99 kg

DRUGS (26)
  1. EPOGEN [Suspect]
     Indication: DIALYSIS
     Route: 042
     Dates: start: 20041101
  2. ARANESP [Suspect]
     Indication: DIALYSIS
     Route: 058
     Dates: start: 20081104, end: 20090107
  3. SENSIPAR [Suspect]
     Indication: HYPERPARATHYROIDISM SECONDARY
     Route: 048
     Dates: start: 20071018, end: 20090422
  4. ANCEF [Concomitant]
     Route: 042
     Dates: start: 20081013, end: 20090111
  5. TOPROL-XL [Concomitant]
     Route: 048
     Dates: start: 20080213, end: 20080414
  6. VANCOMYCIN HCL [Concomitant]
     Route: 042
     Dates: start: 20090112
  7. INFLUENZA VACCINE [Concomitant]
     Route: 030
     Dates: start: 20081001, end: 20081002
  8. VENOFER [Concomitant]
     Route: 042
     Dates: start: 20071223, end: 20080123
  9. PHOSLO [Concomitant]
     Route: 048
     Dates: start: 20060719, end: 20080618
  10. ZEMPLAR [Concomitant]
     Route: 042
     Dates: start: 20080116
  11. ASPIRIN [Concomitant]
     Route: 048
     Dates: start: 20071102
  12. METOPROLOL TARTRATE [Concomitant]
     Route: 048
     Dates: start: 20080414, end: 20080423
  13. NORVASC [Concomitant]
     Route: 048
     Dates: start: 20070425, end: 20080213
  14. TERAZOSIN HYDROCHLORIDE [Concomitant]
     Route: 048
     Dates: start: 20050411, end: 20080213
  15. VALIUM [Concomitant]
     Route: 048
     Dates: start: 20080528, end: 20081128
  16. COLACE [Concomitant]
     Route: 048
     Dates: start: 20080208
  17. HECTORAL [Concomitant]
     Route: 042
     Dates: start: 20071121, end: 20080326
  18. TUMS [Concomitant]
     Route: 048
     Dates: start: 20071228
  19. FERROUS SULFATE TAB [Concomitant]
     Route: 048
     Dates: start: 20081001, end: 20081128
  20. TRENTAL [Concomitant]
     Route: 048
     Dates: start: 20050727, end: 20081128
  21. ALBUTEROL [Concomitant]
     Dates: start: 20081020, end: 20081128
  22. SYMBICORT [Concomitant]
     Dates: start: 20080208, end: 20080414
  23. BOOST [Concomitant]
     Route: 048
     Dates: start: 20080208
  24. CENTRUM SILVER [Concomitant]
     Route: 048
     Dates: start: 20050505
  25. VITAMIN D3 [Concomitant]
     Route: 048
     Dates: start: 20071205
  26. PNEUMOCOCCAL VACCINE [Concomitant]
     Route: 030
     Dates: start: 20090202, end: 20090203

REACTIONS (10)
  - ADVERSE REACTION [None]
  - ARTERIAL OCCLUSIVE DISEASE [None]
  - BLISTER [None]
  - BRADYCARDIA [None]
  - HEPATIC LESION [None]
  - PNEUMONIA [None]
  - PULMONARY FIBROSIS [None]
  - SPONDYLOARTHROPATHY [None]
  - THERAPEUTIC RESPONSE DECREASED [None]
  - TYPE 2 DIABETES MELLITUS [None]
